FAERS Safety Report 7158293-6 (Version None)
Quarter: 2010Q4

REPORT INFORMATION
  Report Type: 
  Country: None (occurrence: None)
  Receive Date: 20101214
  Receipt Date: 20101210
  Transmission Date: 20110411
  Serious: Yes (Other)
  Sender: FDA-Public Use
  Company Number: US-PFIZER INC-2010163544

PATIENT

DRUGS (1)
  1. PROTONIX [Suspect]

REACTIONS (1)
  - THROAT CANCER [None]
